FAERS Safety Report 8236899-0 (Version None)
Quarter: 2012Q1

REPORT INFORMATION
  Report Type: 
  Country: None (occurrence: None)
  Receive Date: 20120327
  Receipt Date: 20120316
  Transmission Date: 20120608
  Serious: Yes (Hospitalization)
  Sender: FDA-Public Use
  Company Number: BR-JNJFOC-20111201864

PATIENT
  Sex: Male
  Weight: 88.2 kg

DRUGS (4)
  1. ZOLADEX [Concomitant]
     Indication: HORMONE THERAPY
     Route: 065
     Dates: start: 20111006
  2. ABIRATERONE ACETATE [Suspect]
     Dosage: CYCLE 1
     Route: 048
     Dates: start: 20111014
  3. PREDNISONE TAB [Suspect]
     Indication: PROSTATE CANCER METASTATIC
     Route: 048
     Dates: start: 20111014
  4. ABIRATERONE ACETATE [Suspect]
     Indication: PROSTATE CANCER METASTATIC
     Dosage: CYCLE 2
     Route: 048
     Dates: start: 20111111, end: 20111130

REACTIONS (1)
  - HEPATITIS [None]
